FAERS Safety Report 9539011 (Version 2)
Quarter: 2013Q3

REPORT INFORMATION
  Report Type: Spontaneous
  Country: CN (occurrence: CN)
  Receive Date: 20130920
  Receipt Date: 20130920
  Transmission Date: 20140515
  Serious: Yes (Other)
  Sender: FDA-Public Use
  Company Number: CN-NAPPMUNDI-GBR-2013-0015419

PATIENT
  Sex: Female

DRUGS (1)
  1. OXYCONTIN TABLETS [Suspect]
     Indication: CANCER PAIN
     Dosage: 30 MG, Q12H
     Route: 048

REACTIONS (3)
  - Incorrect drug administration rate [Unknown]
  - Salivary hypersecretion [Unknown]
  - Drug ineffective [Unknown]
